FAERS Safety Report 7970271-3 (Version None)
Quarter: 2011Q4

REPORT INFORMATION
  Report Type: 
  Country: None (occurrence: None)
  Receive Date: 20111122
  Receipt Date: 20110705
  Transmission Date: 20120403
  Serious: Yes (Other)
  Sender: FDA-Public Use
  Company Number: PHHY2011US60079

PATIENT
  Age: 43 Year
  Sex: Female

DRUGS (9)
  1. CLONIDINE [Concomitant]
  2. GILENYA [Suspect]
     Indication: MULTIPLE SCLEROSIS
     Dosage: 0.5 MG, DAILY, ORAL
     Route: 048
     Dates: start: 20100901, end: 20110703
  3. LAMICTAL [Concomitant]
  4. CLOZAPINE [Concomitant]
  5. PROZAC [Concomitant]
  6. ADDERALL 10 [Concomitant]
  7. TRAZODONE HCL [Concomitant]
  8. TIZANIDINE HCL [Concomitant]
  9. ZANAFLEX [Concomitant]

REACTIONS (4)
  - MULTIPLE SCLEROSIS RELAPSE [None]
  - CENTRAL NERVOUS SYSTEM LESION [None]
  - MEMORY IMPAIRMENT [None]
  - PERIPHERAL SENSORIMOTOR NEUROPATHY [None]
